FAERS Safety Report 6071181-1 (Version None)
Quarter: 2009Q1

REPORT INFORMATION
  Report Type: 
  Country: None (occurrence: None)
  Receive Date: 20090209
  Receipt Date: 20090205
  Transmission Date: 20090719
  Serious: Yes (Hospitalization)
  Sender: FDA-Public Use
  Company Number: JP-B.I. PHARMACEUTICALS,INC./RIDGEFIELD-2009-BP-01477NB

PATIENT
  Sex: Male

DRUGS (2)
  1. MICARDIS [Suspect]
     Indication: HYPERTENSION
     Dosage: 40MG
     Route: 048
     Dates: start: 20070301, end: 20080709
  2. ASPIRIN [Concomitant]
     Dosage: 100MG
     Route: 048
     Dates: start: 20050823, end: 20080709

REACTIONS (1)
  - CEREBRAL INFARCTION [None]
